FAERS Safety Report 10011305 (Version 2)
Quarter: 2014Q1

REPORT INFORMATION
  Report Type: Spontaneous
  Country: JP (occurrence: JP)
  Receive Date: 20140314
  Receipt Date: 20140327
  Transmission Date: 20141002
  Serious: Yes (Hospitalization)
  Sender: FDA-Public Use
  Company Number: JP-JNJFOC-20140306199

PATIENT
  Age: 90 Year
  Sex: Male
  Weight: 50 kg

DRUGS (9)
  1. TRAMACET [Suspect]
     Indication: PAIN
     Route: 048
     Dates: end: 20140121
  2. JUVELAN [Suspect]
     Indication: PRODUCT USED FOR UNKNOWN INDICATION
     Route: 048
     Dates: end: 20140121
  3. DIART [Concomitant]
     Route: 048
  4. PLETAAL [Concomitant]
     Route: 048
  5. SODIUM CHLORIDE [Concomitant]
     Route: 065
  6. OPALMON [Concomitant]
     Route: 048
  7. MOSAPRIDE CITRATE [Concomitant]
     Route: 048
  8. GASCON [Concomitant]
     Route: 048
  9. LAC-B [Concomitant]
     Route: 048

REACTIONS (1)
  - Eczema [Recovered/Resolved]
